FAERS Safety Report 5694587-9 (Version None)
Quarter: 2008Q2

REPORT INFORMATION
  Report Type: 
  Country: None (occurrence: None)
  Receive Date: 20080404
  Receipt Date: 20080326
  Transmission Date: 20081010
  Serious: Yes (Other)
  Sender: FDA-Public Use
  Company Number: US-ROCHE-542669

PATIENT
  Age: 11 Year
  Sex: Female

DRUGS (1)
  1. TAMIFLU [Suspect]
     Route: 065
     Dates: start: 20060201

REACTIONS (5)
  - ALPHA TUMOUR NECROSIS FACTOR INCREASED [None]
  - COGNITIVE DISORDER [None]
  - INTERLEUKIN LEVEL INCREASED [None]
  - MENTAL IMPAIRMENT [None]
  - PYREXIA [None]
